FAERS Safety Report 18991917 (Version 1)
Quarter: 2021Q1

REPORT INFORMATION
  Report Type: Spontaneous
  Country: FR (occurrence: FR)
  Receive Date: 20210310
  Receipt Date: 20210310
  Transmission Date: 20210420
  Serious: Yes (Hospitalization, Congenital Anomaly, Other)
  Sender: FDA-Public Use
  Company Number: FR-ROCHE-2783164

PATIENT
  Age: 32 Year
  Sex: Male

DRUGS (2)
  1. DEPAKINE [Suspect]
     Active Substance: VALPROATE SODIUM
     Indication: PRODUCT USED FOR UNKNOWN INDICATION
     Dosage: 2000 MG
     Route: 064
     Dates: start: 19871207, end: 19880903
  2. CLONAZEPAM. [Suspect]
     Active Substance: CLONAZEPAM
     Indication: PRODUCT USED FOR UNKNOWN INDICATION
     Dosage: 1 MG
     Route: 064
     Dates: start: 19871207, end: 19880903

REACTIONS (31)
  - Hypertelorism of orbit [Unknown]
  - Dysmorphism [Unknown]
  - Dysgraphia [Unknown]
  - Ventricular septal defect [Unknown]
  - Pulmonary valve stenosis [Unknown]
  - Aphasia [Unknown]
  - Nasal disorder [Unknown]
  - Speech disorder [Unknown]
  - Prognathism [Unknown]
  - Cerebral ventricle dilatation [Unknown]
  - Language disorder [Unknown]
  - Knee deformity [Unknown]
  - Oropharyngeal discomfort [Unknown]
  - Muscular weakness [Unknown]
  - Cardiomegaly [Unknown]
  - Behaviour disorder [Unknown]
  - Kyphoscoliosis [Unknown]
  - Cryptorchism [Unknown]
  - Cardiac murmur [Unknown]
  - Failure to thrive [Unknown]
  - Respiratory failure [Unknown]
  - Dyslexia [Unknown]
  - Ear disorder [Unknown]
  - Intellectual disability [Unknown]
  - Foetal exposure during pregnancy [Unknown]
  - Pulmonary arterial hypertension [Unknown]
  - Inguinal hernia [Unknown]
  - Echolalia [Unknown]
  - Hypotonia [Unknown]
  - Psychomotor retardation [Unknown]
  - Pectus excavatum [Unknown]
